FAERS Safety Report 8779466 (Version 2)
Quarter: 2012Q4

REPORT INFORMATION
  Report Type: 
  Country: JP (occurrence: JP)
  Receive Date: 20120912
  Receipt Date: 20121003
  Transmission Date: 20130627
  Serious: Yes (Other)
  Sender: FDA-Public Use
  Company Number: JP-SANOFI-AVENTIS-2012SA065080

PATIENT
  Age: 65 Year
  Sex: Male
  Weight: 58 kg

DRUGS (7)
  1. ELPLAT [Suspect]
     Indication: RECTAL CANCER
     Route: 041
     Dates: start: 20120423, end: 20120423
  2. ELPLAT [Suspect]
     Indication: RECTAL CANCER
     Route: 041
     Dates: start: 20120604, end: 20120604
  3. XELODA [Suspect]
     Indication: RECTAL CANCER
     Route: 048
     Dates: start: 20120423, end: 20120506
  4. XELODA [Suspect]
     Indication: RECTAL CANCER
     Route: 048
     Dates: start: 20120604, end: 20120617
  5. CHLOR-TRIMETON [Concomitant]
     Dates: start: 20120423, end: 20120604
  6. DEXAMETHASONE SODIUM PHOSPHATE [Concomitant]
     Dates: start: 20120423, end: 20120604
  7. NASEA [Concomitant]
     Dates: start: 20120423, end: 20120604

REACTIONS (1)
  - Rhabdomyolysis [Recovering/Resolving]
